FAERS Safety Report 8927728 (Version 3)
Quarter: 2013Q1

REPORT INFORMATION
  Report Type: Report from Study
  Country: DE (occurrence: DE)
  Receive Date: 20121127
  Receipt Date: 20130116
  Transmission Date: 20140127
  Serious: Yes (Hospitalization)
  Sender: FDA-Public Use
  Company Number: PHHY2012DE105994

PATIENT
  Sex: Female

DRUGS (14)
  1. AMN107 [Suspect]
     Dosage: UNK
     Dates: start: 20120216
  2. KEPPRA [Concomitant]
     Indication: EPILEPSY
     Dosage: UNK
  3. ZONISAMIDE [Concomitant]
     Indication: EPILEPSY
     Dosage: UNK
  4. CITALOPRAM [Concomitant]
     Indication: DEPRESSION
     Dosage: UNK
  5. ACETYLSALICYL.ACID W/CAFFE./CODE. [Concomitant]
     Indication: MYOCARDIAL INFARCTION
     Dosage: UNK
  6. ACETYLSALICYL.ACID W/CAFFE./CODE. [Concomitant]
     Indication: HYPERTENSION
  7. ACETYLSALICYL.ACID W/CAFFE./CODE. [Concomitant]
     Indication: PROPHYLAXIS
  8. SIMVASTATIN [Concomitant]
     Indication: GALLBLADDER ENLARGEMENT
     Dosage: UNK
  9. SIMVASTATIN [Concomitant]
     Indication: LIVER DISORDER
  10. OMEP [Concomitant]
     Indication: PROPHYLAXIS
     Dosage: UNK
  11. L-THYROX JOD HEXAL [Concomitant]
     Indication: THYROID DISORDER
     Dosage: UNK
  12. LAMOTRIGIN [Concomitant]
     Indication: EPILEPSY
     Dosage: UNK
  13. CALCIGEN D3 [Concomitant]
     Indication: EPILEPSY
     Dosage: UNK
  14. MIRTAZEPINE TEVA [Concomitant]
     Dosage: UNK

REACTIONS (2)
  - Suicide attempt [Unknown]
  - Liver function test abnormal [Unknown]
